FAERS Safety Report 20740609 (Version 2)
Quarter: 2022Q2

REPORT INFORMATION
  Report Type: Spontaneous
  Country: US (occurrence: US)
  Receive Date: 20220422
  Receipt Date: 20220608
  Transmission Date: 20220721
  Serious: Yes (Other)
  Sender: FDA-Public Use
  Company Number: US-NOVARTISPH-NVSC2022US092709

PATIENT

DRUGS (3)
  1. ENOXAPARIN [Suspect]
     Active Substance: ENOXAPARIN
     Indication: Foetal exposure during pregnancy
     Dosage: MATERNAL DOSE: 100 MG, BID
     Route: 064
  2. ENOXAPARIN [Suspect]
     Active Substance: ENOXAPARIN
     Dosage: MATERNAL DOSE: 40 MG, QD
     Route: 064
  3. HEPARIN [Suspect]
     Active Substance: HEPARIN SODIUM
     Indication: Foetal exposure during pregnancy
     Dosage: MATERNAL EXPOSURE DURING PREGNANCY: UNK
     Route: 064

REACTIONS (2)
  - Premature baby [Unknown]
  - Foetal exposure during pregnancy [Unknown]
